FAERS Safety Report 4691298-3 (Version None)
Quarter: 2005Q2

REPORT INFORMATION
  Report Type: 
  Country: None (occurrence: None)
  Receive Date: 20050614
  Receipt Date: 20050601
  Transmission Date: 20051028
  Serious: Yes (Hospitalization, Other)
  Sender: FDA-Public Use
  Company Number: 2005079651

PATIENT
  Age: 75 Year
  Sex: Female
  Weight: 81.6475 kg

DRUGS (1)
  1. CELEBREX [Suspect]
     Indication: ILL-DEFINED DISORDER
     Dosage: (200 MG), ORAL
     Route: 048
     Dates: start: 20030619

REACTIONS (4)
  - CEREBROVASCULAR ACCIDENT [None]
  - DYSSTASIA [None]
  - FEELING ABNORMAL [None]
  - MYOCARDIAL INFARCTION [None]
